FAERS Safety Report 26079084 (Version 1)
Quarter: 2025Q4

REPORT INFORMATION
  Report Type: Spontaneous
  Country: US (occurrence: US)
  Receive Date: 20251123
  Receipt Date: 20251123
  Transmission Date: 20260118
  Serious: No
  Sender: GALPHARM INTERNATIONAL
  Company Number: US-PERRIGO-25US005429

PATIENT
  Age: 17 Year
  Sex: Female
  Weight: 62.585 kg

DRUGS (3)
  1. OPILL [Suspect]
     Active Substance: NORGESTREL
     Indication: Acne
     Dosage: 0.075 MG, QD
     Route: 048
     Dates: start: 202503, end: 20250424
  2. OPILL [Suspect]
     Active Substance: NORGESTREL
     Indication: Menstrual disorder
  3. IRON [Concomitant]
     Active Substance: IRON
     Indication: Blood loss anaemia
     Dosage: UNK
     Route: 065
     Dates: start: 202504

REACTIONS (5)
  - Intermenstrual bleeding [Not Recovered/Not Resolved]
  - Headache [Not Recovered/Not Resolved]
  - Dizziness [Not Recovered/Not Resolved]
  - Polymenorrhoea [Not Recovered/Not Resolved]
  - Drug ineffective for unapproved indication [Unknown]

NARRATIVE: CASE EVENT DATE: 20250301
